FAERS Safety Report 9735693 (Version 1)
Quarter: 2013Q4

REPORT INFORMATION
  Report Type: Spontaneous
  Country: US (occurrence: US)
  Receive Date: 20131206
  Receipt Date: 20131206
  Transmission Date: 20140711
  Serious: Yes (Death)
  Sender: FDA-Public Use
  Company Number: PHEH2013US025273

PATIENT
  Sex: Female

DRUGS (2)
  1. AFINITOR [Suspect]
     Indication: BREAST CANCER METASTATIC
     Dosage: 10 MG, QD
     Route: 048
     Dates: start: 20130322
  2. AROMASIN [Concomitant]
     Dosage: 25 MG, QD
     Route: 048
     Dates: start: 20130222

REACTIONS (8)
  - Vomiting [Fatal]
  - Aspiration [Fatal]
  - Sepsis [Fatal]
  - Peritonitis [Fatal]
  - Malnutrition [Fatal]
  - Pneumonia bacterial [Fatal]
  - Hypotension [Fatal]
  - Bradycardia [Fatal]
